FAERS Safety Report 22348464 (Version 2)
Quarter: 2023Q2

REPORT INFORMATION
  Report Type: Report from Study
  Country: IT (occurrence: None)
  Receive Date: 20230522
  Receipt Date: 20230531
  Transmission Date: 20230722
  Serious: Yes (Hospitalization, Disabling)
  Sender: FDA-Public Use
  Company Number: IT-ROCHE-3351443

PATIENT
  Age: 69 Year
  Sex: Female
  Weight: 54 kg

DRUGS (4)
  1. ATEZOLIZUMAB [Suspect]
     Active Substance: ATEZOLIZUMAB
     Indication: Transitional cell carcinoma
     Dosage: ON 26/APR/2023, MOST RECENT DOSE OF ATEZOLIZUMAB WAS ADMINISTERED.
     Route: 041
     Dates: start: 20220617
  2. ENALAPRIL [Concomitant]
     Active Substance: ENALAPRIL
     Indication: Hypertension
     Route: 048
     Dates: start: 1990
  3. CARBOPLATIN [Concomitant]
     Active Substance: CARBOPLATIN
     Dates: start: 20210423, end: 20210722
  4. GEMCITABINE [Concomitant]
     Active Substance: GEMCITABINE
     Dates: start: 20210423, end: 20210722

REACTIONS (1)
  - Shoulder fracture [Recovering/Resolving]

NARRATIVE: CASE EVENT DATE: 20230512
